FAERS Safety Report 13307874 (Version 2)
Quarter: 2017Q1

REPORT INFORMATION
  Report Type: Spontaneous
  Country: CH (occurrence: CH)
  Receive Date: 20170308
  Receipt Date: 20170309
  Transmission Date: 20170428
  Serious: Yes (Congenital Anomaly, Other)
  Sender: FDA-Public Use
  Company Number: CH-ABBVIE-17P-151-1899973-00

PATIENT
  Age: 8 Month
  Sex: Female

DRUGS (2)
  1. DEPAKINE [Suspect]
     Active Substance: VALPROATE SODIUM
     Indication: EXPOSURE DURING BREAST FEEDING
     Route: 063
  2. DEPAKINE [Suspect]
     Active Substance: VALPROATE SODIUM
     Indication: MATERNAL EXPOSURE TIMING UNSPECIFIED
     Route: 064

REACTIONS (18)
  - Exposure during breast feeding [Unknown]
  - Astigmatism [Not Recovered/Not Resolved]
  - Intellectual disability [Not Recovered/Not Resolved]
  - Autism spectrum disorder [Unknown]
  - Neurodevelopmental disorder [Not Recovered/Not Resolved]
  - Dysmorphism [Not Recovered/Not Resolved]
  - Poor feeding infant [Recovered/Resolved]
  - Anxiety [Unknown]
  - Congenital nail disorder [Not Recovered/Not Resolved]
  - Foot deformity [Not Recovered/Not Resolved]
  - Electroencephalogram abnormal [Unknown]
  - Ligament laxity [Not Recovered/Not Resolved]
  - Strabismus [Unknown]
  - Retained deciduous tooth [Unknown]
  - Loss of consciousness [Not Recovered/Not Resolved]
  - Foetal exposure during pregnancy [Unknown]
  - Eating disorder [Unknown]
  - Disorientation [Unknown]

NARRATIVE: CASE EVENT DATE: 2012
